FAERS Safety Report 17768903 (Version 1)
Quarter: 2020Q2

REPORT INFORMATION
  Report Type: Spontaneous
  Country: US (occurrence: US)
  Receive Date: 20200512
  Receipt Date: 20200512
  Transmission Date: 20200714
  Serious: No
  Sender: FDA-Public Use
  Company Number: US-ELI_LILLY_AND_COMPANY-US202005001041

PATIENT
  Sex: Female

DRUGS (1)
  1. CYMBALTA [Suspect]
     Active Substance: DULOXETINE HYDROCHLORIDE
     Indication: ANXIETY
     Dosage: 20 MG, DAILY
     Route: 048
     Dates: start: 20200427, end: 20200429

REACTIONS (9)
  - Drug withdrawal syndrome [Unknown]
  - Dizziness [Recovering/Resolving]
  - Feeling abnormal [Unknown]
  - Prescribed underdose [Unknown]
  - Heart rate decreased [Recovering/Resolving]
  - Sleep disorder due to a general medical condition [Recovered/Resolved]
  - Nausea [Recovering/Resolving]
  - Anxiety [Recovering/Resolving]
  - Headache [Not Recovered/Not Resolved]

NARRATIVE: CASE EVENT DATE: 20200427
